FAERS Safety Report 5943677-1 (Version None)
Quarter: 2008Q4

REPORT INFORMATION
  Report Type: 
  Country: None (occurrence: None)
  Receive Date: 20081106
  Receipt Date: 20081030
  Transmission Date: 20090506
  Serious: Yes (Hospitalization)
  Sender: FDA-Public Use
  Company Number: PHHO2006AR14848

PATIENT
  Sex: Male
  Weight: 85.9 kg

DRUGS (9)
  1. VALSARTAN [Suspect]
     Indication: CARDIOVASCULAR DISORDER
     Dosage: LEVEL 1
     Route: 048
     Dates: start: 20030602
  2. VALSARTAN [Suspect]
     Dosage: LEVEL 2
     Route: 048
  3. VALSARTAN [Suspect]
     Dosage: LEVEL 2
     Route: 048
     Dates: start: 20060925, end: 20080803
  4. NATEGLINIDE [Suspect]
     Indication: GLUCOSE TOLERANCE IMPAIRED
     Dosage: UNK
     Route: 048
     Dates: start: 20030602
  5. NATEGLINIDE [Suspect]
     Dosage: LEVEL 2
     Route: 048
  6. NATEGLINIDE [Suspect]
     Dosage: LEVEL 2
     Route: 048
     Dates: start: 20060925, end: 20080803
  7. BLINDED NO TREATMENT RECEIVED NOMED [Suspect]
  8. BLINDED PLACEBO PLACEBO [Suspect]
  9. STARLIX [Suspect]

REACTIONS (15)
  - ACUTE CORONARY SYNDROME [None]
  - ANAEMIA [None]
  - ANGINA PECTORIS [None]
  - ASTHENIA [None]
  - CAROTID ARTERY DISEASE [None]
  - CHEST PAIN [None]
  - DIZZINESS [None]
  - DYSPNOEA [None]
  - ELECTROCARDIOGRAM ST SEGMENT DEPRESSION [None]
  - GASTROINTESTINAL ANGIODYSPLASIA [None]
  - HAEMORRHOIDS [None]
  - INTERMITTENT CLAUDICATION [None]
  - PROTEINURIA [None]
  - RENAL FAILURE ACUTE [None]
  - TINNITUS [None]
